FAERS Safety Report 6328155-2 (Version None)
Quarter: 2009Q3

REPORT INFORMATION
  Report Type: 
  Country: None (occurrence: None)
  Receive Date: 20090825
  Receipt Date: 20081210
  Transmission Date: 20100115
  Serious: No
  Sender: FDA-Public Use
  Company Number: US-ABBOTT-08P-163-0487989-00

PATIENT
  Sex: Female

DRUGS (5)
  1. SYNTHROID [Suspect]
     Indication: THYROIDECTOMY
     Route: 048
     Dates: start: 20070101
  2. SINGULAIR [Concomitant]
     Indication: SEASONAL ALLERGY
     Dosage: AS NEEDED
     Route: 048
  3. LEKOVIT CA [Concomitant]
     Indication: MINERAL SUPPLEMENTATION
     Dosage: 600/250  3 IN ONE DAY
     Route: 048
  4. BIOTON [Concomitant]
     Indication: VITAMIN SUPPLEMENTATION
     Route: 048
  5. VEGETAL CILICA [Concomitant]
     Indication: MINERAL SUPPLEMENTATION
     Route: 048

REACTIONS (4)
  - DECREASED APPETITE [None]
  - DEPRESSION [None]
  - FATIGUE [None]
  - FEELING ABNORMAL [None]
